FAERS Safety Report 4543932-6 (Version None)
Quarter: 2005Q1

REPORT INFORMATION
  Report Type: 
  Country: None (occurrence: None)
  Receive Date: 20050104
  Receipt Date: 20041227
  Transmission Date: 20050727
  Serious: Yes (Death)
  Sender: FDA-Public Use
  Company Number: US-JNJFOC-20040905358

PATIENT
  Sex: Female

DRUGS (10)
  1. REMINYL [Suspect]
     Indication: DEMENTIA
     Dosage: 4 MG TAKEN IN THE MORNING, 8 MG AT NIGHT
     Route: 049
  2. SYNTHROID [Concomitant]
     Route: 049
  3. PROTONIX [Concomitant]
     Route: 049
  4. PROZAC [Concomitant]
     Route: 049
  5. AMIODARONE HCL [Concomitant]
     Route: 049
  6. DILANTIN [Concomitant]
     Route: 049
  7. FLAGYL [Concomitant]
     Route: 049
  8. NEURONTIN [Concomitant]
     Route: 049
  9. COUMADIN [Concomitant]
     Route: 049
  10. FOSAMAX [Concomitant]
     Route: 049

REACTIONS (1)
  - SEPSIS [None]
